FAERS Safety Report 13020737 (Version 3)
Quarter: 2017Q2

REPORT INFORMATION
  Report Type: Spontaneous
  Country: US (occurrence: US)
  Receive Date: 20161212
  Receipt Date: 20170530
  Transmission Date: 20170830
  Serious: Yes (Other)
  Sender: FDA-Public Use
  Company Number: US-LUNDBECK-DKLU2023675

PATIENT
  Sex: Male

DRUGS (5)
  1. NORTHERA [Suspect]
     Active Substance: DROXIDOPA
     Route: 048
     Dates: start: 20161122, end: 20170523
  2. NORTHERA [Suspect]
     Active Substance: DROXIDOPA
     Indication: AUTONOMIC NEUROPATHY
     Route: 048
  3. NORTHERA [Suspect]
     Active Substance: DROXIDOPA
     Indication: ORTHOSTATIC HYPOTENSION
     Route: 048
     Dates: start: 20161124
  4. NORTHERA [Suspect]
     Active Substance: DROXIDOPA
     Route: 048
     Dates: start: 20161122, end: 20170523
  5. NORTHERA [Suspect]
     Active Substance: DROXIDOPA
     Route: 048

REACTIONS (7)
  - Adrenal insufficiency [Unknown]
  - Fatigue [Unknown]
  - Dizziness [Unknown]
  - Drug ineffective [Unknown]
  - Blood glucose increased [Unknown]
  - Asthenia [Unknown]
  - Blood pressure fluctuation [Not Recovered/Not Resolved]
